FAERS Safety Report 8306013-1 (Version None)
Quarter: 2012Q2

REPORT INFORMATION
  Report Type: 
  Country: None (occurrence: None)
  Receive Date: 20120423
  Receipt Date: 20120411
  Transmission Date: 20120825
  Serious: Yes (Other)
  Sender: FDA-Public Use
  Company Number: SA-ROCHE-1059812

PATIENT
  Sex: Female
  Weight: 64.9 kg

DRUGS (3)
  1. PEGINTERFERON ALFA-2A [Suspect]
     Indication: HEPATITIS C
     Dosage: LAST DOSE PRIOR TO SAE: 02/APR/2012
     Route: 058
     Dates: start: 20120116
  2. COPEGUS [Suspect]
     Indication: HEPATITIS C
     Dosage: LAST DOSE PRIOR TO SAE: 10/APR/2012
     Route: 048
     Dates: start: 20120116
  3. PEGINTERFERON ALFA-2A [Suspect]
     Route: 058
     Dates: start: 20120411

REACTIONS (1)
  - ASCITES [None]
